FAERS Safety Report 24806836 (Version 2)
Quarter: 2025Q1

REPORT INFORMATION
  Report Type: Spontaneous
  Country: US (occurrence: US)
  Receive Date: 20250104
  Receipt Date: 20250104
  Transmission Date: 20250409
  Serious: Yes (Death, Hospitalization, Other)
  Sender: AMGEN
  Company Number: US-AMGEN-USASP2024256948

PATIENT
  Age: 59 Year
  Sex: Male

DRUGS (2)
  1. PREDNISONE [Suspect]
     Active Substance: PREDNISONE
     Indication: Immunosuppression
     Route: 065
  2. TACROLIMUS [Concomitant]
     Active Substance: TACROLIMUS
     Indication: Immunosuppression
     Route: 065

REACTIONS (10)
  - Death [Fatal]
  - Diarrhoea haemorrhagic [Unknown]
  - Epstein-Barr virus infection [Unknown]
  - Cytomegalovirus infection [Unknown]
  - Retroperitoneal lymphadenopathy [Unknown]
  - Colitis [Unknown]
  - Kaposi^s sarcoma [Unknown]
  - Renal failure [Unknown]
  - Clostridium difficile infection [Unknown]
  - Drug ineffective [Unknown]
